FAERS Safety Report 8542730-6 (Version None)
Quarter: 2012Q3

REPORT INFORMATION
  Report Type: 
  Country: None (occurrence: None)
  Receive Date: 20120727
  Receipt Date: 20120717
  Transmission Date: 20120928
  Serious: Yes (Other)
  Sender: FDA-Public Use
  Company Number: US-BIOGENIDEC-2012BI016617

PATIENT
  Age: 62 Year
  Sex: Female

DRUGS (5)
  1. FISH OIL [Concomitant]
  2. VITAMIN D [Concomitant]
  3. ASPIRIN [Concomitant]
  4. CALCIUM [Concomitant]
  5. AVONEX [Suspect]
     Indication: MULTIPLE SCLEROSIS
     Route: 030
     Dates: start: 20110427, end: 20120509

REACTIONS (23)
  - DRY SKIN [None]
  - MEMORY IMPAIRMENT [None]
  - PRURITUS [None]
  - DIZZINESS [None]
  - PYREXIA [None]
  - TOOTH FRACTURE [None]
  - SKIN DISCOLOURATION [None]
  - VISION BLURRED [None]
  - ASTHMA [None]
  - ALOPECIA [None]
  - MUSCLE SPASMS [None]
  - FEELING ABNORMAL [None]
  - WEIGHT DECREASED [None]
  - AMNESIA [None]
  - GENERAL SYMPTOM [None]
  - SCAR [None]
  - SLEEP DISORDER [None]
  - DYSKINESIA [None]
  - GAIT DISTURBANCE [None]
  - BLOOD CHOLESTEROL INCREASED [None]
  - EYE PAIN [None]
  - BONE PAIN [None]
  - INFLUENZA LIKE ILLNESS [None]
